FAERS Safety Report 7268693-1 (Version None)
Quarter: 2011Q1

REPORT INFORMATION
  Report Type: 
  Country: None (occurrence: None)
  Receive Date: 20110201
  Receipt Date: 20110201
  Transmission Date: 20110831
  Serious: Yes (Death, Hospitalization)
  Sender: FDA-Public Use
  Company Number: PY-B.I. PHARMACEUTICALS,INC./RIDGEFIELD-2011-RA-00018RA

PATIENT
  Age: 86 Year
  Sex: Female

DRUGS (6)
  1. ALPRAZOLAM [Concomitant]
  2. AMLODIPINE [Concomitant]
     Indication: HYPERTENSION
  3. ENALAPRIL MALEATE [Concomitant]
     Indication: HYPERTENSION
     Dosage: 20 MG
  4. DABIGATRAN ETEXILATE [Suspect]
     Indication: THROMBOSIS PROPHYLAXIS
     Dosage: 110 MG
     Route: 048
     Dates: start: 20101222, end: 20101229
  5. INSULIN [Concomitant]
     Indication: TYPE 2 DIABETES MELLITUS
  6. OMEPRAZOLE [Concomitant]

REACTIONS (3)
  - RENAL FAILURE ACUTE [None]
  - DEATH [None]
  - URINARY TRACT INFECTION [None]
